FAERS Safety Report 20439846 (Version 2)
Quarter: 2022Q2

REPORT INFORMATION
  Report Type: Spontaneous
  Country: IN (occurrence: IN)
  Receive Date: 20220207
  Receipt Date: 20220419
  Transmission Date: 20220721
  Serious: Yes (Other)
  Sender: FDA-Public Use
  Company Number: IN-PFIZER INC-2020403067

PATIENT
  Age: 35 Year
  Sex: Female

DRUGS (28)
  1. PALBOCICLIB [Suspect]
     Active Substance: PALBOCICLIB
     Indication: Breast cancer metastatic
     Dosage: 125 MG, 1X/DAY
     Route: 048
     Dates: start: 20200110
  2. PALBOCICLIB [Suspect]
     Active Substance: PALBOCICLIB
     Dosage: 100 MG, 1X/DAY
     Route: 048
     Dates: start: 20201009, end: 202110
  3. ZOLEDRONIC ACID [Concomitant]
     Active Substance: ZOLEDRONIC ACID
     Dosage: 4 MG
     Dates: start: 20200206
  4. ZOLEDRONIC ACID [Concomitant]
     Active Substance: ZOLEDRONIC ACID
     Dosage: 4 MG
     Dates: start: 20200303
  5. ZOLEDRONIC ACID [Concomitant]
     Active Substance: ZOLEDRONIC ACID
     Dosage: 4 MG
     Dates: start: 20200402
  6. ZOLEDRONIC ACID [Concomitant]
     Active Substance: ZOLEDRONIC ACID
     Dosage: 4 MG
     Dates: start: 20200506
  7. ZOLEDRONIC ACID [Concomitant]
     Active Substance: ZOLEDRONIC ACID
     Dosage: 4 MG
     Dates: start: 20200603
  8. ZOLEDRONIC ACID [Concomitant]
     Active Substance: ZOLEDRONIC ACID
     Dosage: 4 MG
     Dates: start: 20200703
  9. ZOLEDRONIC ACID [Concomitant]
     Active Substance: ZOLEDRONIC ACID
     Dosage: 4 MG
     Dates: start: 20200804
  10. ZOLEDRONIC ACID [Concomitant]
     Active Substance: ZOLEDRONIC ACID
     Dosage: 4 MG
     Dates: start: 20200901
  11. ZOLEDRONIC ACID [Concomitant]
     Active Substance: ZOLEDRONIC ACID
     Dosage: 4 MG
     Dates: start: 20200930
  12. ZOLEDRONIC ACID [Concomitant]
     Active Substance: ZOLEDRONIC ACID
     Dosage: 4 MG
     Dates: start: 20201029
  13. ZOLEDRONIC ACID [Concomitant]
     Active Substance: ZOLEDRONIC ACID
     Dosage: 4 MG
     Dates: start: 20201126
  14. ZOLEDRONIC ACID [Concomitant]
     Active Substance: ZOLEDRONIC ACID
     Dosage: 4 MG
     Dates: start: 20201226
  15. GOSERELIN [Concomitant]
     Active Substance: GOSERELIN
     Dosage: 3.6 MG
     Dates: start: 20200206
  16. GOSERELIN [Concomitant]
     Active Substance: GOSERELIN
     Dosage: 3.6 MG
     Dates: start: 20200303
  17. GOSERELIN [Concomitant]
     Active Substance: GOSERELIN
     Dosage: 3.6 MG
     Dates: start: 20200402
  18. GOSERELIN [Concomitant]
     Active Substance: GOSERELIN
     Dosage: 3.6 MG
     Dates: start: 20200506
  19. GOSERELIN [Concomitant]
     Active Substance: GOSERELIN
     Dosage: 3.6 MG
     Dates: start: 20200603
  20. GOSERELIN [Concomitant]
     Active Substance: GOSERELIN
     Dosage: 3.6 MG
     Dates: start: 20200703
  21. GOSERELIN [Concomitant]
     Active Substance: GOSERELIN
     Dosage: 3.6 MG
     Dates: start: 20200804
  22. GOSERELIN [Concomitant]
     Active Substance: GOSERELIN
     Dosage: 3.6 MG
     Dates: start: 20200901
  23. GOSERELIN [Concomitant]
     Active Substance: GOSERELIN
     Dosage: 3.6 MG
     Dates: start: 20200930
  24. GOSERELIN [Concomitant]
     Active Substance: GOSERELIN
     Dosage: 3.6 MG
     Dates: start: 20201029
  25. GOSERELIN [Concomitant]
     Active Substance: GOSERELIN
     Dosage: 3.6 MG
     Dates: start: 20201126
  26. GOSERELIN [Concomitant]
     Active Substance: GOSERELIN
     Dosage: 3.6 MG
     Dates: start: 20201226
  27. LETROZOLE [Concomitant]
     Active Substance: LETROZOLE
     Dosage: 2.5 MG
  28. FULVESTRANT [Concomitant]
     Active Substance: FULVESTRANT
     Dosage: 500MG IM STAT
     Route: 030

REACTIONS (10)
  - Neutrophil count decreased [Unknown]
  - White blood cell count decreased [Unknown]
  - Mastectomy [Unknown]
  - Oophorectomy [Unknown]
  - T-lymphocyte count abnormal [Unknown]
  - Neoplasm progression [Unknown]
  - Alopecia [Unknown]
  - Anxiety [Unknown]
  - Anosmia [Unknown]
  - Off label use [Unknown]

NARRATIVE: CASE EVENT DATE: 20200101
